FAERS Safety Report 4523537-3 (Version None)
Quarter: 2004Q4

REPORT INFORMATION
  Report Type: 
  Country: None (occurrence: None)
  Receive Date: 20041210
  Receipt Date: 20031016
  Transmission Date: 20050328
  Serious: Yes (Hospitalization)
  Sender: FDA-Public Use
  Company Number: DE-ROCHE-349411

PATIENT
  Age: 65 Year
  Sex: Female

DRUGS (50)
  1. MYCOPHENOLATE MOFETIL [Suspect]
     Route: 048
     Dates: start: 20030921, end: 20031016
  2. MYCOPHENOLATE MOFETIL [Suspect]
     Route: 048
     Dates: start: 20031022
  3. DACLIZUMAB [Suspect]
     Route: 042
     Dates: start: 20030921
  4. DACLIZUMAB [Suspect]
     Dosage: FOR FOUR DOSES.
     Route: 042
  5. CYCLOSPORINE [Suspect]
     Route: 048
     Dates: start: 20030107
  6. CYCLOSPORINE [Suspect]
     Route: 048
     Dates: start: 20030921
  7. CYCLOSPORINE [Suspect]
     Route: 048
     Dates: start: 20030930
  8. CYCLOSPORINE [Suspect]
     Route: 048
     Dates: start: 20031010
  9. CYCLOSPORINE [Suspect]
     Route: 048
     Dates: start: 20031012
  10. CYCLOSPORINE [Suspect]
     Route: 048
     Dates: start: 20031014, end: 20031014
  11. CYCLOSPORINE [Suspect]
     Route: 048
     Dates: start: 20031015
  12. CYCLOSPORINE [Suspect]
     Route: 048
     Dates: start: 20031016
  13. CYCLOSPORINE [Suspect]
     Route: 048
     Dates: start: 20031020
  14. CYCLOSPORINE [Suspect]
     Route: 048
     Dates: start: 20031021
  15. CYCLOSPORINE [Suspect]
     Route: 048
     Dates: start: 20031027
  16. CYCLOSPORINE [Suspect]
     Route: 048
     Dates: start: 20031120
  17. CYCLOSPORINE [Suspect]
     Route: 048
     Dates: start: 20031204
  18. CYCLOSPORINE [Suspect]
     Route: 048
     Dates: start: 20031211
  19. PREDNISOLONE [Suspect]
     Route: 042
     Dates: start: 20030921
  20. PREDNISOLONE [Suspect]
     Route: 042
     Dates: start: 20030922, end: 20030922
  21. PREDNISOLONE [Suspect]
     Route: 042
     Dates: start: 20030930
  22. PREDNISOLONE [Suspect]
     Route: 048
     Dates: start: 20030922
  23. PREDNISOLONE [Suspect]
     Route: 048
     Dates: start: 20030925
  24. PREDNISOLONE [Suspect]
     Route: 048
     Dates: start: 20030928
  25. PREDNISOLONE [Suspect]
     Route: 048
     Dates: start: 20030930, end: 20031003
  26. PREDNISOLONE [Suspect]
     Route: 048
     Dates: start: 20031003
  27. PREDNISOLONE [Suspect]
     Route: 048
     Dates: start: 20031006
  28. PREDNISOLONE [Suspect]
     Route: 048
     Dates: start: 20031009
  29. PREDNISOLONE [Suspect]
     Route: 048
     Dates: start: 20031012
  30. PREDNISOLONE [Suspect]
     Route: 048
     Dates: start: 20031020
  31. PREDNISOLONE [Suspect]
     Route: 048
     Dates: start: 20031031
  32. PREDNISOLONE [Suspect]
     Route: 048
     Dates: start: 20031128
  33. PREDNISOLONE [Suspect]
     Route: 048
     Dates: start: 20031228
  34. EINSALPHA [Concomitant]
     Route: 048
     Dates: start: 20030921, end: 20031016
  35. DREISAVIT N [Concomitant]
     Route: 048
     Dates: start: 20030921, end: 20031013
  36. NORVASC [Concomitant]
     Route: 048
     Dates: start: 20030615
  37. PANTOZOL [Concomitant]
     Route: 048
  38. BELOC-ZOK MITE [Concomitant]
     Route: 048
     Dates: start: 20030925
  39. LASIX [Concomitant]
     Route: 048
     Dates: start: 20031002, end: 20031015
  40. ACTONEL [Concomitant]
     Route: 048
     Dates: start: 20030928
  41. AMPHO MORONAL [Concomitant]
     Route: 048
     Dates: start: 20030927
  42. CIPROBAY [Concomitant]
     Route: 048
     Dates: start: 20031009, end: 20031020
  43. PRAVASIN [Concomitant]
     Route: 048
     Dates: start: 20031014
  44. AMPICILLIN SODIUM/SULBACTAM SODIUM [Concomitant]
     Dates: start: 20030921
  45. NOVALGIN [Concomitant]
     Dates: start: 20030922, end: 20030925
  46. GANCICLOVIR [Concomitant]
     Dates: start: 20030615
  47. NEORECORMON [Concomitant]
     Dates: start: 20031005, end: 20031023
  48. ACTRAPID [Concomitant]
     Dosage: PRN
     Dates: start: 20031023
  49. MOXIFLOXACIN [Concomitant]
     Dates: start: 20031021, end: 20031103
  50. FLUVASTATIN [Concomitant]
     Dates: start: 20031219

REACTIONS (4)
  - ENTEROCOCCAL INFECTION [None]
  - LYMPHOCELE [None]
  - WOUND DEHISCENCE [None]
  - WOUND INFECTION [None]
